FAERS Safety Report 23916574 (Version 1)
Quarter: 2024Q2

REPORT INFORMATION
  Report Type: Spontaneous
  Country: US (occurrence: None)
  Receive Date: 20240528
  Receipt Date: 20240528
  Transmission Date: 20240716
  Serious: Yes (Other)
  Sender: FDA-Public Use
  Company Number: None

PATIENT
  Age: 61 Year
  Sex: Female
  Weight: 72.6 kg

DRUGS (1)
  1. DEFINITY [Suspect]
     Active Substance: PERFLUTREN
     Indication: Echocardiogram
     Dosage: 1.3 ML ONCE INTRAVENOUS
     Route: 042
     Dates: start: 20240525, end: 20240525

REACTIONS (4)
  - Hyperhidrosis [None]
  - Confusional state [None]
  - Hypertension [None]
  - Oxygen saturation decreased [None]

NARRATIVE: CASE EVENT DATE: 20240525
